FAERS Safety Report 8010382-X (Version None)
Quarter: 2011Q4

REPORT INFORMATION
  Report Type: 
  Country: None (occurrence: None)
  Receive Date: 20111228
  Receipt Date: 20111219
  Transmission Date: 20120403
  Serious: Yes (Hospitalization)
  Sender: FDA-Public Use
  Company Number: UA-B.I. PHARMACEUTICALS,INC./RIDGEFIELD-2011-AP-00721AP

PATIENT
  Age: 63 Year
  Sex: Male

DRUGS (1)
  1. PRADAXA [Suspect]
     Indication: HIP ARTHROPLASTY
     Dosage: 2 CAPSULES/ONCE A DAY
     Route: 048
     Dates: start: 20111127, end: 20111203

REACTIONS (2)
  - OEDEMA [None]
  - HAEMATOMA [None]
